FAERS Safety Report 5634648-3 (Version None)
Quarter: 2008Q1

REPORT INFORMATION
  Report Type: 
  Country: None (occurrence: None)
  Receive Date: 20080222
  Receipt Date: 20080211
  Transmission Date: 20080703
  Serious: Yes (Hospitalization, Other)
  Sender: FDA-Public Use
  Company Number: US-ASTRAZENECA-2007UW02041

PATIENT
  Age: 16065 Day
  Sex: Female
  Weight: 81.8 kg

DRUGS (2)
  1. SEROQUEL [Suspect]
     Indication: BIPOLAR DISORDER
     Route: 048
     Dates: start: 20000101, end: 20070301
  2. SEROQUEL [Suspect]
     Route: 048
     Dates: start: 20060301, end: 20060401

REACTIONS (18)
  - BACK PAIN [None]
  - BREAST MASS [None]
  - BRONCHITIS [None]
  - CHEST PAIN [None]
  - COUGH [None]
  - DERMATITIS CONTACT [None]
  - GASTRITIS [None]
  - HYPERGLYCAEMIA [None]
  - HYPERLIPIDAEMIA [None]
  - HYPERSENSITIVITY [None]
  - NAUSEA [None]
  - PNEUMONIA [None]
  - RASH [None]
  - RHINITIS ALLERGIC [None]
  - SINUSITIS [None]
  - TYPE 2 DIABETES MELLITUS [None]
  - VIRAL INFECTION [None]
  - VOMITING [None]
